FAERS Safety Report 6236867-4 (Version None)
Quarter: 2009Q2

REPORT INFORMATION
  Report Type: 
  Country: None (occurrence: None)
  Receive Date: 20090619
  Receipt Date: 20090617
  Transmission Date: 20091009
  Serious: Yes (Other)
  Sender: FDA-Public Use
  Company Number: US-BAYER-200911653BCC

PATIENT
  Age: 84 Year
  Sex: Male
  Weight: 112 kg

DRUGS (10)
  1. ALEVE [Suspect]
     Indication: PERICARDITIS
     Dosage: TOTAL DAILY DOSE: 880 MG  UNIT DOSE: 220 MG
     Route: 048
     Dates: start: 20090519, end: 20090525
  2. ALEVE [Suspect]
     Dosage: TOTAL DAILY DOSE: 220 MG  UNIT DOSE: 220 MG
     Route: 048
     Dates: start: 20090526
  3. ASPIRIN [Concomitant]
     Dosage: TOTAL DAILY DOSE: 162 MG  UNIT DOSE: 81 MG
     Route: 048
  4. ULORIC [Concomitant]
     Route: 065
  5. QINAPRIL [Concomitant]
     Dosage: TOTAL DAILY DOSE: 40 MG  UNIT DOSE: 20 MG
     Route: 065
  6. COLCHICINE [Concomitant]
     Route: 065
  7. FINASTERIDE [Concomitant]
     Route: 065
  8. CARDURA [Concomitant]
     Route: 065
  9. WELCHOL [Concomitant]
     Dosage: UNIT DOSE: 625 MG
     Route: 065
  10. BUMETANIDE [Concomitant]
     Route: 065

REACTIONS (4)
  - MICTURITION FREQUENCY DECREASED [None]
  - SOMNOLENCE [None]
  - SWELLING FACE [None]
  - WEIGHT INCREASED [None]
